FAERS Safety Report 25725600 (Version 1)
Quarter: 2025Q3

REPORT INFORMATION
  Report Type: Spontaneous
  Country: AU (occurrence: AU)
  Receive Date: 20250826
  Receipt Date: 20250826
  Transmission Date: 20251021
  Serious: Yes (Hospitalization, Other)
  Sender: UNICHEM
  Company Number: AU-UNICHEM LABORATORIES LIMITED-UNI-2025-AU-003075

PATIENT

DRUGS (1)
  1. CLONIDINE [Suspect]
     Active Substance: CLONIDINE
     Indication: Hypertension
     Route: 065

REACTIONS (5)
  - Acute coronary syndrome [Unknown]
  - Suicide attempt [Unknown]
  - Stress cardiomyopathy [Unknown]
  - Intentional overdose [Unknown]
  - Hypertension [Unknown]
